FAERS Safety Report 24787945 (Version 1)
Quarter: 2024Q4

REPORT INFORMATION
  Report Type: Spontaneous
  Country: IT (occurrence: IT)
  Receive Date: 20241230
  Receipt Date: 20241230
  Transmission Date: 20250114
  Serious: No
  Sender: ALKEM
  Company Number: None

PATIENT
  Age: 16 Year
  Sex: Male
  Weight: 44 kg

DRUGS (11)
  1. TACROLIMUS [Suspect]
     Active Substance: TACROLIMUS
     Indication: Product used for unknown indication
     Dosage: UNK
     Route: 065
  2. AMOXICILLIN\CLAVULANATE POTASSIUM [Suspect]
     Active Substance: AMOXICILLIN\CLAVULANATE POTASSIUM
     Indication: Septic shock
     Dosage: 25 MILLIGRAM/KILOGRAM, TID
     Route: 042
  3. ALLOPURINOL [Concomitant]
     Active Substance: ALLOPURINOL
     Indication: Hyperuricaemia
     Dosage: 100 MG/DAY
     Route: 065
  4. Immunoglobulin [Concomitant]
     Indication: Product used for unknown indication
     Dosage: 1 GRAM PER KILOGRAM
     Route: 065
  5. LOSARTAN [Concomitant]
     Active Substance: LOSARTAN
     Indication: Hypertension
     Dosage: 12.5 MILLIGRAM, QD
     Route: 065
  6. METHYLPREDNISOLONE [Concomitant]
     Active Substance: METHYLPREDNISOLONE
     Indication: Product used for unknown indication
     Dosage: 1.3 MILLIGRAM/KILOGRAM, BID
     Route: 065
  7. OMEPRAZOLE [Concomitant]
     Active Substance: OMEPRAZOLE
     Indication: Hyperuricaemia
     Dosage: 12.5 MG/DAY
     Route: 065
  8. ACETAMINOPHEN [Concomitant]
     Active Substance: ACETAMINOPHEN
     Indication: Product used for unknown indication
     Dosage: 15 MILLIGRAM/KILOGRAM
     Route: 065
  9. PREDNISONE [Concomitant]
     Active Substance: PREDNISONE
     Indication: Product used for unknown indication
     Dosage: 1 MILLIGRAM/KILOGRAM, BID
     Route: 065
  10. RAMIPRIL [Concomitant]
     Active Substance: RAMIPRIL
     Indication: Hypertension
     Dosage: 5 MILLIGRAM, QD
     Route: 065
  11. RITUXIMAB [Concomitant]
     Active Substance: RITUXIMAB
     Indication: Acute kidney injury
     Dosage: 375 MILLIGRAM/SQ. METER, QD
     Route: 065

REACTIONS (3)
  - Immunosuppressant drug level increased [Unknown]
  - Procalcitonin increased [Unknown]
  - C-reactive protein increased [Unknown]

NARRATIVE: CASE EVENT DATE: 20200101
